FAERS Safety Report 9955589 (Version 1)
Quarter: 2014Q1

REPORT INFORMATION
  Report Type: Report from Study
  Country: US (occurrence: US)
  Receive Date: 20140304
  Receipt Date: 20140304
  Transmission Date: 20141002
  Serious: No
  Sender: FDA-Public Use
  Company Number: US-ABBVIE-13P-163-1086324-00

PATIENT
  Age: 37 Year
  Sex: Female

DRUGS (7)
  1. HUMIRA [Suspect]
     Indication: CROHN^S DISEASE
     Dates: start: 20121220
  2. ALPRAZOLAM [Concomitant]
     Indication: ANXIETY
     Dosage: AT NIGHT
  3. ALPRAZOLAM [Concomitant]
     Indication: INSOMNIA
  4. CETIRIZINE [Concomitant]
     Indication: HYPERSENSITIVITY
     Dosage: AT NIGHT
  5. MIRALAX [Concomitant]
     Indication: ABNORMAL FAECES
  6. LEVOTHYROXINE [Concomitant]
     Indication: PRODUCT USED FOR UNKNOWN INDICATION
  7. LEVOTHYROXINE [Concomitant]

REACTIONS (2)
  - Thyroid function test abnormal [Not Recovered/Not Resolved]
  - Injection site bruising [Unknown]
